FAERS Safety Report 15007185 (Version 4)
Quarter: 2018Q4

REPORT INFORMATION
  Report Type: Spontaneous
  Country: JP (occurrence: JP)
  Receive Date: 20180613
  Receipt Date: 20181102
  Transmission Date: 20190204
  Serious: Yes (Other)
  Sender: FDA-Public Use
  Company Number: JP-JNJFOC-20180613378

PATIENT
  Age: 79 Year
  Sex: Female

DRUGS (4)
  1. ARTIST [Concomitant]
     Active Substance: CARVEDILOL
     Route: 065
  2. XARELTO [Suspect]
     Active Substance: RIVAROXABAN
     Indication: ATRIAL FIBRILLATION
     Route: 048
     Dates: start: 20141004, end: 20141217
  3. FEBUXOSTAT. [Concomitant]
     Active Substance: FEBUXOSTAT
     Route: 065
  4. CLOTIAZEPAM [Concomitant]
     Active Substance: CLOTIAZEPAM
     Route: 065

REACTIONS (3)
  - Nausea [Unknown]
  - Embolic stroke [Recovering/Resolving]
  - Dizziness [Unknown]

NARRATIVE: CASE EVENT DATE: 20141217
